FAERS Safety Report 4943438-6 (Version None)
Quarter: 2006Q1

REPORT INFORMATION
  Report Type: 
  Country: None (occurrence: None)
  Receive Date: 20060309
  Receipt Date: 20060213
  Transmission Date: 20060701
  Serious: Yes (Congenital Anomaly)
  Sender: FDA-Public Use
  Company Number: 2006001532

PATIENT
  Sex: 0

DRUGS (3)
  1. VIRACEPT [Suspect]
     Indication: HIV INFECTION
     Dosage: 2500 MG, ORAL
     Route: 048
  2. VIDEX [Suspect]
     Indication: HIV INFECTION
     Dosage: 400 MG, ORAL
     Route: 048
  3. ZIAGEN [Suspect]
     Indication: HIV INFECTION
     Dosage: 600 MG, ORAL
     Route: 048

REACTIONS (4)
  - ABORTION INDUCED [None]
  - DRUG EXPOSURE BEFORE PREGNANCY [None]
  - PREGNANCY WITH ADVANCED MATERNAL AGE [None]
  - TRISOMY 21 [None]
